FAERS Safety Report 9120747 (Version 6)
Quarter: 2013Q2

REPORT INFORMATION
  Report Type: Report from Study
  Country: CA (occurrence: CA)
  Receive Date: 20130226
  Receipt Date: 20130618
  Transmission Date: 20140414
  Serious: Yes (Other)
  Sender: FDA-Public Use
  Company Number: CA-ROCHE-1193346

PATIENT
  Age: 51 Year
  Sex: Female
  Weight: 61.2 kg

DRUGS (15)
  1. RITUXAN [Suspect]
     Indication: RHEUMATOID ARTHRITIS
     Dosage: DAY 1, 15
     Route: 042
     Dates: start: 20120216
  2. RITUXAN [Suspect]
     Route: 065
     Dates: start: 20120301
  3. BENADRYL [Suspect]
     Indication: INFUSION RELATED REACTION
     Route: 048
  4. BENADRYL [Suspect]
     Route: 042
  5. DIPHENHYDRAMINE HCL [Concomitant]
     Indication: PREMEDICATION
     Route: 048
     Dates: start: 20120216
  6. ACETAMINOPHEN [Concomitant]
     Indication: PREMEDICATION
     Route: 048
     Dates: start: 20120216
  7. METHYLPREDNISOLONE [Concomitant]
     Indication: PREMEDICATION
     Route: 042
     Dates: start: 20120216
  8. PROPRANOLOL [Concomitant]
     Indication: MIGRAINE
     Route: 065
  9. PANTOLOC [Concomitant]
     Route: 065
  10. ATIVAN [Concomitant]
  11. FOLIC ACID [Concomitant]
  12. ATACAND [Concomitant]
  13. PREDNISONE [Concomitant]
  14. ACLASTA [Concomitant]
  15. MARIJUANA [Concomitant]

REACTIONS (17)
  - Infusion related reaction [Recovered/Resolved]
  - Coital bleeding [Unknown]
  - Fluid retention [Recovered/Resolved]
  - Periorbital oedema [Not Recovered/Not Resolved]
  - Muscle spasms [Recovering/Resolving]
  - Muscle spasms [Recovering/Resolving]
  - Hypersensitivity [Not Recovered/Not Resolved]
  - Pollakiuria [Recovered/Resolved]
  - Weight increased [Not Recovered/Not Resolved]
  - Infusion related reaction [Unknown]
  - Eye irritation [Not Recovered/Not Resolved]
  - Sinus congestion [Not Recovered/Not Resolved]
  - Fluid retention [Not Recovered/Not Resolved]
  - Throat tightness [Not Recovered/Not Resolved]
  - Pain [Not Recovered/Not Resolved]
  - Fatigue [Not Recovered/Not Resolved]
  - Blood test abnormal [Unknown]
